FAERS Safety Report 4941746-6 (Version None)
Quarter: 2006Q1

REPORT INFORMATION
  Report Type: 
  Country: None (occurrence: None)
  Receive Date: 20060308
  Receipt Date: 20060224
  Transmission Date: 20060701
  Serious: Yes (Disabling)
  Sender: FDA-Public Use
  Company Number: 2005160670

PATIENT
  Age: 78 Year
  Sex: Female
  Weight: 49.8957 kg

DRUGS (3)
  1. ZMAX [Suspect]
     Indication: EAR PAIN
     Dosage: ORAL
     Route: 048
     Dates: start: 20051114, end: 20051114
  2. DETROL [Concomitant]
  3. FAMVIR [Concomitant]

REACTIONS (10)
  - ABDOMINAL PAIN UPPER [None]
  - ARTHRALGIA [None]
  - ASTHENIA [None]
  - DISEASE RECURRENCE [None]
  - DRUG EFFECT DECREASED [None]
  - EAR PAIN [None]
  - FEELING ABNORMAL [None]
  - HEADACHE [None]
  - MALAISE [None]
  - MENTAL IMPAIRMENT [None]
